FAERS Safety Report 13180622 (Version 1)
Quarter: 2017Q1

REPORT INFORMATION
  Report Type: Spontaneous
  Country: DE (occurrence: DE)
  Receive Date: 20170202
  Receipt Date: 20170202
  Transmission Date: 20170428
  Serious: Yes (Other)
  Sender: FDA-Public Use
  Company Number: DE-PFIZER INC-2017039397

PATIENT
  Age: 43 Year
  Sex: Female

DRUGS (8)
  1. SERTRALINE HCL [Suspect]
     Active Substance: SERTRALINE HYDROCHLORIDE
     Indication: DEPRESSION
     Dosage: 100 MG, 1X/DAY 1 TRIMESTER 0. - 37.2. GESTATIONAL WEEK
     Route: 048
     Dates: start: 20151128, end: 20160815
  2. ATOSIL DROPS [Concomitant]
     Indication: SLEEP DISORDER
     Dosage: 1 TRIMESTER, 6.2. - 6.2. GESTATIONAL WEEK
     Route: 048
     Dates: start: 20160111, end: 20160111
  3. FERRLECIT [Concomitant]
     Active Substance: SODIUM FERRIC GLUCONATE COMPLEX
     Indication: IRON DEFICIENCY
     Dosage: 62.5 MG, 18 INJECTIONS IN TOTAL
     Route: 042
  4. RENNIE [Concomitant]
     Active Substance: MAGNESIUM CARBONATE
     Indication: DYSPEPSIA
     Dosage: 2 TRIMESTER, 19.6. - 28.4. GESTATIONAL WEEK
     Route: 048
  5. OMEPRAZOL [Concomitant]
     Active Substance: OMEPRAZOLE
     Indication: DYSPEPSIA
     Dosage: ONLY ONCE DURING THAT TIME, 3 TRIMESTER, 28. - 32. GESTATIONAL WEEK
     Route: 048
  6. RIOPAN [Concomitant]
     Active Substance: MAGALDRATE
     Indication: DYSPEPSIA
     Dosage: 4 OR 5 TIMES ONLY
     Route: 048
  7. LEVODOPA [Concomitant]
     Active Substance: LEVODOPA
     Indication: RESTLESS LEGS SYNDROME
     Dosage: 25 MG, 1X/DAY 1 TRIMESTER 0. - 12.5. GESTATIONAL WEEK
     Route: 048
  8. FOLIO [Concomitant]
     Active Substance: FOLIC ACID
     Indication: PROPHYLAXIS OF NEURAL TUBE DEFECT
     Dosage: 0.4 MG, 1X/DAY 1 TRIMESTER, 4. - 37.2. GESTATIONAL WEEK
     Route: 048

REACTIONS (2)
  - Gestational diabetes [Unknown]
  - Vomiting in pregnancy [Unknown]
